FAERS Safety Report 4666172-9 (Version None)
Quarter: 2005Q2

REPORT INFORMATION
  Report Type: 
  Country: None (occurrence: None)
  Receive Date: 20050517
  Receipt Date: 20050517
  Transmission Date: 20051028
  Serious: Yes (Death)
  Sender: FDA-Public Use
  Company Number: None

PATIENT
  Age: 82 Year
  Sex: Female
  Weight: 68.0396 kg

DRUGS (1)
  1. ATIVAN [Suspect]

REACTIONS (16)
  - ADVERSE DRUG REACTION [None]
  - CEREBROVASCULAR ACCIDENT [None]
  - CHEST PAIN [None]
  - COMA [None]
  - CONDITION AGGRAVATED [None]
  - COUGH [None]
  - DISORIENTATION [None]
  - DYSPNOEA [None]
  - FEELING HOT [None]
  - HAEMOPTYSIS [None]
  - INCORRECT DOSE ADMINISTERED [None]
  - INFECTION [None]
  - INJURY [None]
  - PATIENT RESTRAINT [None]
  - PNEUMONIA [None]
  - RESTLESSNESS [None]
